FAERS Safety Report 4351330-3 (Version None)
Quarter: 2004Q2

REPORT INFORMATION
  Report Type: 
  Country: None (occurrence: None)
  Receive Date: 20040428
  Receipt Date: 20040412
  Transmission Date: 20050107
  Serious: Yes (Other)
  Sender: FDA-Public Use
  Company Number: USA040464722

PATIENT
  Age: 14 Week
  Sex: Female

DRUGS (2)
  1. FLUOXETINE [Suspect]
     Dates: start: 20040329
  2. PAXIL [Concomitant]

REACTIONS (5)
  - DRUG EXPOSURE VIA BREAST MILK [None]
  - HAEMATOCHEZIA [None]
  - LOOSE STOOLS [None]
  - RECTAL HAEMORRHAGE [None]
  - SOMNOLENCE [None]
